FAERS Safety Report 5363289-0 (Version None)
Quarter: 2007Q2

REPORT INFORMATION
  Report Type: 
  Country: None (occurrence: None)
  Receive Date: 20070620
  Receipt Date: 20070614
  Transmission Date: 20071010
  Serious: Yes (Other)
  Sender: FDA-Public Use
  Company Number: US-JNJFOC-20070603485

PATIENT
  Sex: Female
  Weight: 63.5 kg

DRUGS (10)
  1. EXTRA STRENGTH TYLENOL [Suspect]
  2. EXTRA STRENGTH TYLENOL [Suspect]
     Indication: BACK PAIN
     Dosage: 500-1000MG EVERY 4 HOURS (AS NEEDED)
  3. HYDROCHLOROTHIAZIDE [Concomitant]
     Indication: FLUID RETENTION
  4. GLYBURIDE [Concomitant]
     Indication: DIABETES MELLITUS NON-INSULIN-DEPENDENT
  5. TOPROL-XL [Concomitant]
     Indication: HYPERTENSION
  6. NASONEX [Concomitant]
     Indication: RESPIRATORY DISORDER
     Dosage: 2 SPRAYS AT BEDTIME
  7. LORATADINE [Concomitant]
     Indication: RESPIRATORY DISORDER
  8. ECOTRIN [Concomitant]
     Indication: THROMBOSIS PROPHYLAXIS
  9. CALCIUM CHLORIDE [Concomitant]
     Indication: NUTRITIONAL SUPPORT
  10. NSAIDS [Concomitant]

REACTIONS (1)
  - VERTIGO [None]
